FAERS Safety Report 8570709-7 (Version None)
Quarter: 2012Q3

REPORT INFORMATION
  Report Type: 
  Country: None (occurrence: None)
  Receive Date: 20120805
  Receipt Date: 20120606
  Transmission Date: 20120928
  Serious: No
  Sender: FDA-Public Use
  Company Number: US-009507513-2012SP035493

PATIENT

DRUGS (10)
  1. CLARITIN-D 24 HOUR [Suspect]
     Indication: HEADACHE
  2. GARLIC [Concomitant]
     Indication: PRODUCT USED FOR UNKNOWN INDICATION
     Dosage: UNK UNK, UNKNOWN
  3. CLARITIN-D 24 HOUR [Suspect]
     Indication: NASAL CONGESTION
  4. EXCEDRIN (MIGRAINE) [Concomitant]
     Indication: HEADACHE
     Dosage: UNK UNK, UNKNOWN
  5. MINERALS (UNSPECIFIED) (+) VITAMINS (UNSPECIFIED) [Concomitant]
     Indication: PRODUCT USED FOR UNKNOWN INDICATION
     Dosage: UNK UNK, UNKNOWN
  6. CHOLECALCIFEROL [Concomitant]
     Indication: PRODUCT USED FOR UNKNOWN INDICATION
     Dosage: UNK UNK, UNKNOWN
  7. FLONASE [Concomitant]
     Indication: HEADACHE
     Dosage: UNK UNK, UNKNOWN
  8. CLARITIN-D 24 HOUR [Suspect]
     Indication: MEDICAL OBSERVATION
     Dosage: 10 MG, ONCE
     Route: 048
     Dates: start: 20120421, end: 20120421
  9. CALCIUM (UNSPECIFIED) [Concomitant]
     Indication: CALCIUM DEFICIENCY
     Dosage: UNK UNK, UNKNOWN
  10. OMEGA-3-ACID ETHYL ESTERS [Concomitant]
     Indication: PRODUCT USED FOR UNKNOWN INDICATION
     Dosage: UNK UNK, UNKNOWN

REACTIONS (3)
  - SPEECH DISORDER [None]
  - DRY MOUTH [None]
  - PHARYNGEAL DISORDER [None]
